FAERS Safety Report 9453157 (Version 1)
Quarter: 2013Q3

REPORT INFORMATION
  Report Type: Other
  Country: GB (occurrence: GB)
  Receive Date: 20130812
  Receipt Date: 20130812
  Transmission Date: 20140515
  Serious: Yes (Life-Threatening, Hospitalization)
  Sender: FDA-Public Use
  Company Number: GB-TARO PHARMACEUTICALS U.S.A., INC-2013SUN02423

PATIENT
  Age: 81 Year
  Sex: Male
  Weight: 85 kg

DRUGS (15)
  1. WARFARIN [Suspect]
     Indication: ATRIAL FIBRILLATION
     Dosage: 3 MG, OD
     Route: 048
     Dates: start: 19950601, end: 20130714
  2. ALLOPURINOL [Concomitant]
  3. BECLOMETASONE DIPROPIONATE [Concomitant]
  4. BISOPROLOL [Concomitant]
  5. BUMETANIDE [Concomitant]
  6. CETIRIZINE [Concomitant]
  7. DIGOXIN [Concomitant]
  8. ENALAPRIL [Concomitant]
  9. FERROUS SULPHATE [Concomitant]
  10. GLICLAZIDE [Concomitant]
  11. LEVOTHYROXINE [Concomitant]
  12. RANITIDINE [Concomitant]
  13. SALBUTAMOL [Concomitant]
  14. SIMVASTATIN [Concomitant]
  15. SPIROLACTONE [Concomitant]

REACTIONS (3)
  - Hypovolaemic shock [Unknown]
  - Gastrointestinal haemorrhage [Recovering/Resolving]
  - Melaena [Unknown]
